FAERS Safety Report 4404299-7 (Version None)
Quarter: 2004Q3

REPORT INFORMATION
  Report Type: 
  Country: None (occurrence: None)
  Receive Date: 20040721
  Receipt Date: 20040721
  Transmission Date: 20050211
  Serious: No
  Sender: FDA-Public Use
  Company Number: None

PATIENT
  Age: 86 Year
  Sex: Male
  Weight: 69 kg

DRUGS (16)
  1. GATIFLOXACIN [Suspect]
     Indication: PNEUMONIA
     Dosage: 400 MG PO
     Route: 048
     Dates: start: 20040226, end: 20040301
  2. GATIFLOXACIN [Suspect]
     Indication: PNEUMONIA
     Dosage: 200 MG PO
     Route: 048
     Dates: start: 20040302, end: 20040311
  3. FUROSEMIDE [Concomitant]
  4. SIMVASTATIN [Concomitant]
  5. COUMADIN [Concomitant]
  6. HYDROCORTISONE CREAM [Concomitant]
  7. CALCIUM CARBONATE [Concomitant]
  8. SYNTHROID [Concomitant]
  9. METOPROLOL TARTRATE [Concomitant]
  10. TERAZOSIN HCL [Concomitant]
  11. LISINOPRIL [Concomitant]
  12. TRAMADOL HCL [Concomitant]
  13. DOCUSATE NA [Concomitant]
  14. METRONIDAZOLE [Concomitant]
  15. LOPERAMIDE HCL [Concomitant]
  16. KAOLIN/PECTIN [Concomitant]

REACTIONS (1)
  - CLOSTRIDIAL INFECTION [None]
